APPROVED DRUG PRODUCT: UROPLUS DS
Active Ingredient: SULFAMETHOXAZOLE; TRIMETHOPRIM
Strength: 800MG;160MG
Dosage Form/Route: TABLET;ORAL
Application: A071816 | Product #001
Applicant: SHIONOGI USA INC
Approved: Sep 28, 1987 | RLD: No | RS: No | Type: DISCN